FAERS Safety Report 12732848 (Version 1)
Quarter: 2016Q3

REPORT INFORMATION
  Report Type: Spontaneous
  Country: US (occurrence: US)
  Receive Date: 20160912
  Receipt Date: 20160912
  Transmission Date: 20161109
  Serious: No
  Sender: FDA-Public Use
  Company Number: US-BAYER-2016-169999

PATIENT
  Age: 70 Year
  Sex: Male
  Weight: 88.44 kg

DRUGS (2)
  1. ALEVE [Suspect]
     Active Substance: NAPROXEN SODIUM
     Indication: PAIN
     Dosage: 2 DF, 2-3 TIMES DAILY
  2. TYLENOL EXTRA STRENGTH [Concomitant]
     Active Substance: ACETAMINOPHEN
     Dosage: UNK

REACTIONS (5)
  - Device ineffective [None]
  - Product use issue [None]
  - Abdominal discomfort [None]
  - Headache [None]
  - Contraindicated product administered [None]
